FAERS Safety Report 14014693 (Version 6)
Quarter: 2018Q1

REPORT INFORMATION
  Report Type: Spontaneous
  Country: US (occurrence: US)
  Receive Date: 20170927
  Receipt Date: 20180314
  Transmission Date: 20180508
  Serious: Yes (Other)
  Sender: FDA-Public Use
  Company Number: US-PFIZER INC-2017413213

PATIENT
  Age: 48 Year
  Sex: Male
  Weight: 90 kg

DRUGS (1)
  1. ADVIL [Suspect]
     Active Substance: IBUPROFEN
     Indication: HEADACHE
     Dosage: 2 DF, UNK, (2 LIQUIGELS BY MOUTH)
     Route: 048
     Dates: start: 20170921, end: 20170921

REACTIONS (17)
  - Swelling [Recovering/Resolving]
  - Anal pruritus [Recovering/Resolving]
  - Inflammation [Recovering/Resolving]
  - Penile swelling [Recovering/Resolving]
  - Penile exfoliation [Recovered/Resolved]
  - Penile pain [Recovering/Resolving]
  - Skin discolouration [Unknown]
  - Pruritus genital [Recovering/Resolving]
  - Anorectal swelling [Not Recovered/Not Resolved]
  - Dysuria [Recovering/Resolving]
  - Burning sensation mucosal [Unknown]
  - Mucosal pain [Unknown]
  - Oral mucosal eruption [Recovered/Resolved]
  - Rash [Recovering/Resolving]
  - Eye swelling [Recovering/Resolving]
  - Cheilitis [Recovering/Resolving]
  - Mouth swelling [Recovering/Resolving]

NARRATIVE: CASE EVENT DATE: 201709
